FAERS Safety Report 6938925-5 (Version None)
Quarter: 2010Q3

REPORT INFORMATION
  Report Type: 
  Country: None (occurrence: None)
  Receive Date: 20100824
  Receipt Date: 20100811
  Transmission Date: 20110219
  Serious: Yes (Hospitalization)
  Sender: FDA-Public Use
  Company Number: B0670587A

PATIENT
  Sex: Male

DRUGS (24)
  1. ZOFRAN [Suspect]
     Indication: PROPHYLAXIS OF NAUSEA AND VOMITING
     Dates: start: 20100618
  2. STUDY MEDICATION [Suspect]
     Indication: NON-SMALL CELL LUNG CANCER
     Route: 042
     Dates: start: 20100618, end: 20100625
  3. PEMETREXED [Suspect]
     Indication: NON-SMALL CELL LUNG CANCER
     Dosage: 850MG EVERY 3 WEEKS
     Route: 042
     Dates: start: 20100618, end: 20100618
  4. CISPLATIN [Suspect]
     Indication: NON-SMALL CELL LUNG CANCER
     Dosage: 128MG EVERY 3 WEEKS
     Route: 042
     Dates: start: 20100618, end: 20100618
  5. SERETIDE [Concomitant]
     Indication: CHRONIC OBSTRUCTIVE PULMONARY DISEASE
     Dates: start: 20100624
  6. SPIRIVA [Concomitant]
     Indication: CHRONIC OBSTRUCTIVE PULMONARY DISEASE
     Dates: start: 20100530
  7. VENTOLIN [Concomitant]
     Indication: CHRONIC OBSTRUCTIVE PULMONARY DISEASE
     Dates: start: 20100530
  8. THEOSPIREX [Concomitant]
     Indication: CHRONIC OBSTRUCTIVE PULMONARY DISEASE
     Dates: start: 20100401, end: 20100625
  9. AMBROXOL [Concomitant]
     Indication: CHRONIC OBSTRUCTIVE PULMONARY DISEASE
     Dates: start: 20100401, end: 20100625
  10. ANDAXIN [Concomitant]
     Dates: start: 20100401, end: 20100625
  11. TIAPRIDAL [Concomitant]
     Dates: start: 20100601
  12. FOLIC ACID [Concomitant]
     Indication: PREMEDICATION
     Dates: start: 20100610, end: 20100610
  13. VITAMIN B-12 [Concomitant]
     Indication: PREMEDICATION
     Dates: start: 20100610, end: 20100610
  14. MEDROL [Concomitant]
     Indication: PREMEDICATION
     Dates: start: 20100617, end: 20100619
  15. MEGACE [Concomitant]
     Dates: start: 20100625, end: 20100630
  16. DALACIN [Concomitant]
     Indication: RASH
     Dates: start: 20100625
  17. ELOCON [Concomitant]
     Indication: RASH
     Dates: start: 20100625
  18. QUAMATEL [Concomitant]
     Dates: start: 20100630
  19. CLEXANE [Concomitant]
     Indication: THROMBOSIS PROPHYLAXIS
     Dates: start: 20100630
  20. BETALOC [Concomitant]
     Indication: ATRIAL FIBRILLATION
     Dates: start: 20100630
  21. METOPROLOL [Concomitant]
     Indication: ATRIAL FIBRILLATION
     Dates: start: 20100630
  22. POTASSIUM CHLORIDE [Concomitant]
     Indication: ATRIAL FIBRILLATION
     Dates: start: 20100630
  23. FUROSEMIDE [Concomitant]
     Dates: start: 20100705
  24. MEGESTROL [Concomitant]
     Dates: start: 20100701

REACTIONS (9)
  - ABDOMINAL DISTENSION [None]
  - ABDOMINAL PAIN [None]
  - ANURIA [None]
  - GENERAL PHYSICAL HEALTH DETERIORATION [None]
  - ILEUS PARALYTIC [None]
  - NAUSEA [None]
  - RENAL FAILURE [None]
  - TACHYARRHYTHMIA [None]
  - VOMITING [None]
